FAERS Safety Report 21975700 (Version 11)
Quarter: 2024Q4

REPORT INFORMATION
  Report Type: Report from Study
  Country: US (occurrence: US)
  Receive Date: 20230210
  Receipt Date: 20241105
  Transmission Date: 20250115
  Serious: Yes (Disabling, Other)
  Sender: NOVARTIS
  Company Number: US-002147023-NVSC2023US027348

PATIENT
  Age: 21 Year
  Sex: Male

DRUGS (4)
  1. KESIMPTA [Suspect]
     Active Substance: OFATUMUMAB
     Indication: Multiple sclerosis
     Dosage: 20 MG, QMO
     Route: 058
     Dates: start: 20211221
  2. KESIMPTA [Suspect]
     Active Substance: OFATUMUMAB
     Dosage: 20 MG, QMO (0.4 ML)
     Route: 058
     Dates: start: 20211223
  3. KESIMPTA [Suspect]
     Active Substance: OFATUMUMAB
     Dosage: 20 MG, QMO
     Route: 058
     Dates: start: 20220101
  4. TESTOSTERONE [Concomitant]
     Active Substance: TESTOSTERONE
     Indication: Ill-defined disorder
     Dosage: UNK
     Route: 065

REACTIONS (19)
  - Balance disorder [Recovered/Resolved]
  - Multiple sclerosis pseudo relapse [Unknown]
  - Product dose omission issue [Recovered/Resolved]
  - Muscle spasms [Recovered/Resolved]
  - Muscle spasms [Unknown]
  - Muscle twitching [Recovered/Resolved]
  - Fatigue [Not Recovered/Not Resolved]
  - Burning sensation [Unknown]
  - COVID-19 [Recovered/Resolved]
  - Anosmia [Unknown]
  - Ageusia [Unknown]
  - Respiratory tract congestion [Unknown]
  - Back pain [Unknown]
  - Cough [Not Recovered/Not Resolved]
  - Vomiting [Recovered/Resolved]
  - Paraesthesia [Not Recovered/Not Resolved]
  - Hypoaesthesia [Not Recovered/Not Resolved]
  - Pain [Unknown]
  - Stress [Unknown]

NARRATIVE: CASE EVENT DATE: 20220104
